FAERS Safety Report 18388787 (Version 4)
Quarter: 2021Q3

REPORT INFORMATION
  Report Type: Spontaneous
  Country: JP (occurrence: JP)
  Receive Date: 20201015
  Receipt Date: 20210914
  Transmission Date: 20211014
  Serious: Yes (Death, Hospitalization, Disabling)
  Sender: FDA-Public Use
  Company Number: JP-JNJFOC-20200811673

PATIENT
  Age: 69 Year
  Sex: Male
  Weight: 45 kg

DRUGS (9)
  1. ERLEADA [Suspect]
     Active Substance: APALUTAMIDE
     Indication: PROSTATE CANCER METASTATIC
     Dosage: AFTER BREAKFAST
     Route: 048
     Dates: start: 20200626, end: 20200803
  2. CEFAZOLIN SODIUM. [Suspect]
     Active Substance: CEFAZOLIN SODIUM
     Indication: PRODUCT USED FOR UNKNOWN INDICATION
     Dosage: DOSE UNKNOWN
     Route: 065
     Dates: end: 202007
  3. NEXIUM [Concomitant]
     Active Substance: ESOMEPRAZOLE MAGNESIUM
     Dosage: AFTER BREAKFAST
     Route: 048
     Dates: start: 20200716, end: 20200723
  4. CELECOX [Suspect]
     Active Substance: CELECOXIB
     Indication: PRODUCT USED FOR UNKNOWN INDICATION
     Dosage: AFTER BREAKFASTAFTER DINNER
     Route: 048
     Dates: start: 20200716, end: 20200723
  5. LYRICA [Concomitant]
     Active Substance: PREGABALIN
     Dosage: AFTER DINNER
     Route: 048
     Dates: start: 20200730
  6. CALONAL [Concomitant]
     Active Substance: ACETAMINOPHEN
     Dosage: AFTER EACH MEAL
     Route: 048
     Dates: start: 20200803, end: 20200814
  7. REBAMIPIDE [Concomitant]
     Active Substance: REBAMIPIDE
     Dosage: AFTER EACH MEAL
     Route: 048
  8. GONAX [Concomitant]
     Active Substance: DEGARELIX
     Indication: PROSTATE CANCER METASTATIC
     Dosage: DOSE UNKNOWN
     Route: 065
     Dates: start: 20200626
  9. LOXOPROFEN SODIUM HYDRATE [Concomitant]
     Active Substance: LOXOPROFEN SODIUM DIHYDRATE
     Dosage: AFTER EACH MEAL
     Route: 048

REACTIONS (4)
  - Rash [Recovering/Resolving]
  - Femur fracture [Recovering/Resolving]
  - Interstitial lung disease [Fatal]
  - Fall [Recovering/Resolving]

NARRATIVE: CASE EVENT DATE: 20200702
